FAERS Safety Report 25142637 (Version 4)
Quarter: 2025Q2

REPORT INFORMATION
  Report Type: Spontaneous
  Country: GR (occurrence: GR)
  Receive Date: 20250331
  Receipt Date: 20250624
  Transmission Date: 20250717
  Serious: No
  Sender: PFIZER
  Company Number: GR-PFIZER INC-PV202500036676

PATIENT
  Age: 10 Year
  Sex: Female
  Weight: 32 kg

DRUGS (1)
  1. GENOTROPIN [Suspect]
     Active Substance: SOMATROPIN
     Indication: Growth hormone deficiency
     Dosage: 6.6 MG, WEEKLY (1 MG X 3 DAYS, 1.2 MG  X 3 DAYS AND 1 DAY OFF)
     Route: 058
     Dates: start: 202404

REACTIONS (1)
  - Device issue [Recovered/Resolved]

NARRATIVE: CASE EVENT DATE: 20250322
